FAERS Safety Report 7545116-6 (Version None)
Quarter: 2011Q2

REPORT INFORMATION
  Report Type: 
  Country: None (occurrence: None)
  Receive Date: 20110606
  Receipt Date: 20110524
  Transmission Date: 20111010
  Serious: Yes (Other)
  Sender: FDA-Public Use
  Company Number: 2011ST000134

PATIENT
  Age: 12 Year
  Sex: Female

DRUGS (5)
  1. ABELCET [Suspect]
     Indication: ACUTE MYELOID LEUKAEMIA
     Dosage: 225 MG;X1;IV
     Route: 042
     Dates: start: 20110314, end: 20110314
  2. BACTRIM [Concomitant]
  3. MERREM [Concomitant]
  4. TARGOCID [Concomitant]
  5. RANIDIL [Concomitant]

REACTIONS (3)
  - INFUSION RELATED REACTION [None]
  - TREMOR [None]
  - CHILLS [None]
